FAERS Safety Report 8847554 (Version 1)
Quarter: 2012Q4

REPORT INFORMATION
  Report Type: 
  Country: US (occurrence: US)
  Receive Date: 20121018
  Receipt Date: 20121018
  Transmission Date: 20130627
  Serious: No
  Sender: FDA-Public Use
  Company Number: US-MYLANLABS-2011S1021040

PATIENT
  Sex: Female

DRUGS (2)
  1. RISPERIDONE [Suspect]
     Indication: AUTISM
     Dates: start: 2010
  2. RISPERIDONE [Suspect]
     Indication: BIPOLAR DISORDER
     Dates: start: 2010

REACTIONS (3)
  - Balance disorder [Not Recovered/Not Resolved]
  - Posture abnormal [Not Recovered/Not Resolved]
  - Posture abnormal [Not Recovered/Not Resolved]
